FAERS Safety Report 8500831 (Version 2)
Quarter: 2013Q2

REPORT INFORMATION
  Report Type: Spontaneous
  Country: US (occurrence: None)
  Receive Date: 20120327
  Receipt Date: 20120709
  Transmission Date: 20140414
  Serious: Yes (Other)
  Sender: FDA-Public Use
  Company Number: PHHY2011US34501

PATIENT
  Age: 81 Year
  Sex: Female
  Weight: 54 kg

DRUGS (12)
  1. GLEEVEC [Suspect]
     Route: 048
     Dates: start: 20110122
  2. AMBIEN CR [Concomitant]
  3. PAXIL [Concomitant]
  4. INDERAL LA [Concomitant]
  5. LOTREL [Concomitant]
  6. RITALIN [Concomitant]
  7. CIPROFLOXACIN EXTENDED-RELEASE [Concomitant]
  8. CARAFATE [Concomitant]
  9. OMEPRAZOLE [Concomitant]
  10. PROCHLORPERAZINE MALEATE [Concomitant]
  11. FISH OIL (FISH OIL) [Concomitant]
  12. VITAMIN D (ERGOCALCIFEROL) [Concomitant]

REACTIONS (4)
  - MUSCULAR WEAKNESS [None]
  - DECREASED APPETITE [None]
  - ABASIA [None]
  - URINARY TRACT INFECTION [None]
